FAERS Safety Report 4485127-0 (Version None)
Quarter: 2004Q4

REPORT INFORMATION
  Report Type: 
  Country: None (occurrence: None)
  Receive Date: 20041026
  Receipt Date: 20031104
  Transmission Date: 20050328
  Serious: Yes (Other)
  Sender: FDA-Public Use
  Company Number: US-BRISTOL-MYERS SQUIBB COMPANY-12426276

PATIENT
  Age: 39 Year
  Sex: Male
  Weight: 133 kg

DRUGS (2)
  1. GLUCOPHAGE XR [Suspect]
     Indication: DIABETES MELLITUS
     Route: 048
     Dates: start: 19970101
  2. GLUCOTROL XL [Concomitant]

REACTIONS (1)
  - BLOOD GLUCOSE INCREASED [None]
